FAERS Safety Report 25385498 (Version 1)
Quarter: 2025Q2

REPORT INFORMATION
  Report Type: Spontaneous
  Country: US (occurrence: US)
  Receive Date: 20250602
  Receipt Date: 20250602
  Transmission Date: 20250716
  Serious: No
  Sender: ABBVIE
  Company Number: US-ABBVIE-6302505

PATIENT
  Sex: Female

DRUGS (1)
  1. ARMOUR THYROID [Suspect]
     Active Substance: THYROID, PORCINE
     Indication: Hypothyroidism
     Dosage: FORM STRENGTH: 15 MILLIGRAM
     Route: 048

REACTIONS (6)
  - Headache [Recovered/Resolved]
  - Brain fog [Recovered/Resolved]
  - Body temperature decreased [Recovered/Resolved]
  - Asthenia [Recovered/Resolved]
  - Mood altered [Recovered/Resolved]
  - Abdominal distension [Recovered/Resolved]
